FAERS Safety Report 10082397 (Version 1)
Quarter: 2014Q2

REPORT INFORMATION
  Report Type: Spontaneous
  Country: US (occurrence: US)
  Receive Date: 20140416
  Receipt Date: 20140416
  Transmission Date: 20141212
  Serious: Yes (Hospitalization)
  Sender: FDA-Public Use
  Company Number: US-JNJFOC-20140406424

PATIENT
  Age: 59 Year
  Sex: Female

DRUGS (5)
  1. INVOKANA [Suspect]
     Indication: TYPE 2 DIABETES MELLITUS
     Route: 048
     Dates: start: 201306
  2. METFORMIN [Concomitant]
  3. CRESTOR [Concomitant]
  4. LIRAGLUTIDE [Concomitant]
  5. ACETAMINOPHEN [Concomitant]

REACTIONS (5)
  - Abdominal pain [Recovered/Resolved]
  - Alanine aminotransferase increased [Recovered/Resolved]
  - Aspartate aminotransferase increased [Recovered/Resolved]
  - Blood bilirubin increased [Recovered/Resolved]
  - Hepatic necrosis [Unknown]
